FAERS Safety Report 8315443-3 (Version None)
Quarter: 2012Q2

REPORT INFORMATION
  Report Type: 
  Country: None (occurrence: None)
  Receive Date: 20120426
  Receipt Date: 20120416
  Transmission Date: 20120825
  Serious: Yes (Other)
  Sender: FDA-Public Use
  Company Number: DE-CELGENEUS-062-21880-12032605

PATIENT
  Age: 59 Year
  Sex: Male
  Weight: 53 kg

DRUGS (6)
  1. REVLIMID [Suspect]
     Indication: MULTIPLE MYELOMA
     Dosage: 10 MILLIGRAM
     Route: 048
     Dates: start: 20110930, end: 20120301
  2. FENTANYL [Concomitant]
     Dosage: 76 MICROGRAM
     Route: 065
  3. BISOPROLOL FUMARATE [Concomitant]
     Dosage: 1.25 MILLIGRAM
     Route: 048
  4. LORAZEPAM [Concomitant]
     Dosage: 1 MILLIGRAM
     Route: 048
  5. BORTEZOMIB [Suspect]
     Indication: MULTIPLE MYELOMA
     Route: 065
     Dates: start: 20101208, end: 20110128
  6. PANTOPRAZOLE [Concomitant]
     Dosage: 40 MILLIGRAM
     Route: 048

REACTIONS (1)
  - MYELODYSPLASTIC SYNDROME [None]
